FAERS Safety Report 8283934-X (Version None)
Quarter: 2012Q2

REPORT INFORMATION
  Report Type: 
  Country: None (occurrence: None)
  Receive Date: 20120413
  Receipt Date: 20120403
  Transmission Date: 20120825
  Serious: Yes (Hospitalization)
  Sender: FDA-Public Use
  Company Number: JP-PFIZER INC-2011281436

PATIENT
  Age: 77 Year
  Sex: Male

DRUGS (15)
  1. AXITINIB [Suspect]
     Indication: HEPATIC NEOPLASM MALIGNANT
     Dosage: 10 MG, 1X/DAY
     Route: 048
     Dates: start: 20110927, end: 20110928
  2. AXITINIB [Suspect]
     Dosage: 3 MG, 2X/DAY
     Route: 048
     Dates: start: 20111011, end: 20111022
  3. LIVACT [Concomitant]
     Indication: HEPATIC CIRRHOSIS
     Dosage: UNK
  4. PROMAC /JPN/ [Suspect]
     Dosage: UNK
  5. URIEF [Concomitant]
     Dosage: UNK
  6. POTACOL-R [Concomitant]
     Dosage: UNK
     Dates: start: 20111026, end: 20111026
  7. AXITINIB [Suspect]
     Dosage: 3 MG, 2X/DAY
     Route: 048
     Dates: start: 20111102, end: 20111115
  8. MIGLITOL [Concomitant]
     Dosage: UNK
  9. PORTOLAC [Concomitant]
     Indication: HEPATIC ENCEPHALOPATHY PROPHYLAXIS
     Dosage: UNK
     Dates: start: 20110929
  10. VITAMEDIN CAPSULE [Concomitant]
     Dosage: UNK
     Dates: start: 20111023, end: 20111028
  11. FAMOTIDINE [Concomitant]
     Dosage: UNK
     Dates: start: 20110929
  12. GLUCOSE [Concomitant]
     Dosage: UNK
     Dates: start: 20111024, end: 20111028
  13. ZOSYN [Concomitant]
     Dosage: UNK
     Dates: start: 20111023, end: 20111026
  14. CEFTRIAXONE [Concomitant]
     Dosage: UNK
     Dates: start: 20111026, end: 20111029
  15. ZOLPIDEM [Concomitant]
     Dosage: UNK
     Dates: start: 20110610

REACTIONS (1)
  - HEPATIC ENCEPHALOPATHY [None]
